FAERS Safety Report 10400425 (Version 1)
Quarter: 2014Q3

REPORT INFORMATION
  Report Type: Spontaneous
  Country: US (occurrence: US)
  Receive Date: 20140821
  Receipt Date: 20140821
  Transmission Date: 20150326
  Serious: No
  Sender: FDA-Public Use
  Company Number: US-ASTRAZENECA-2013SE87000

PATIENT
  Age: 83 Year
  Sex: Male
  Weight: 106.6 kg

DRUGS (3)
  1. INSULIN [Concomitant]
     Active Substance: INSULIN NOS
     Dosage: 50 TID
  2. SYMBICORT [Suspect]
     Active Substance: BUDESONIDE\FORMOTEROL FUMARATE DIHYDRATE
     Dosage: 2 PUFFS Q4H
     Route: 055
     Dates: start: 20131125
  3. THEOPHYLLINE [Concomitant]
     Active Substance: THEOPHYLLINE
     Indication: DYSPNOEA

REACTIONS (7)
  - Pain in extremity [Unknown]
  - Pain [Unknown]
  - Nausea [Unknown]
  - Adverse event [Unknown]
  - Dizziness [Unknown]
  - Tremor [Unknown]
  - Circumstance or information capable of leading to medication error [Unknown]
